FAERS Safety Report 7892221-0 (Version None)
Quarter: 2011Q4

REPORT INFORMATION
  Report Type: 
  Country: None (occurrence: None)
  Receive Date: 20111104
  Receipt Date: 20111024
  Transmission Date: 20120403
  Serious: Yes (Hospitalization)
  Sender: FDA-Public Use
  Company Number: US-BIOGENIDEC-2011BI007141

PATIENT
  Age: 34 Year
  Sex: Female

DRUGS (1)
  1. TYSABRI [Suspect]
     Indication: MULTIPLE SCLEROSIS
     Route: 042
     Dates: start: 20100305, end: 20101210

REACTIONS (8)
  - STAPHYLOCOCCAL SEPSIS [None]
  - PYREXIA [None]
  - LUNG DISORDER [None]
  - HEADACHE [None]
  - RENAL FAILURE [None]
  - PULMONARY EMBOLISM [None]
  - CENTRAL VENOUS CATHETER REMOVAL [None]
  - KIDNEY INFECTION [None]
